FAERS Safety Report 22539491 (Version 1)
Quarter: 2023Q2

REPORT INFORMATION
  Report Type: Spontaneous
  Country: US (occurrence: US)
  Receive Date: 20230609
  Receipt Date: 20230609
  Transmission Date: 20230722
  Serious: Yes (Hospitalization)
  Sender: FDA-Public Use
  Company Number: US-BRISTOL-MYERS SQUIBB COMPANY-2023-080892

PATIENT
  Age: 84 Year
  Sex: Male
  Weight: 83.46 kg

DRUGS (30)
  1. REVLIMID [Suspect]
     Active Substance: LENALIDOMIDE
     Indication: Plasma cell myeloma
     Dosage: 1 QD X 21DAYS/28
     Route: 048
     Dates: start: 20220816, end: 20221019
  2. REVLIMID [Suspect]
     Active Substance: LENALIDOMIDE
     Dosage: 1 QD X 21DAYS/28
     Route: 048
     Dates: start: 20221019, end: 20221020
  3. REVLIMID [Suspect]
     Active Substance: LENALIDOMIDE
     Dosage: 1 QD X 21DAYS/28
     Route: 048
     Dates: start: 20221020, end: 20221108
  4. REVLIMID [Suspect]
     Active Substance: LENALIDOMIDE
     Dosage: 1 QD X 21DAYS/28
     Route: 048
     Dates: start: 20221108, end: 20221201
  5. REVLIMID [Suspect]
     Active Substance: LENALIDOMIDE
     Dosage: 1 QD X 21DAYS/28
     Route: 048
     Dates: start: 20221201, end: 20221228
  6. REVLIMID [Suspect]
     Active Substance: LENALIDOMIDE
     Dosage: 1 QD X 21DAYS/28
     Route: 048
     Dates: start: 20221228, end: 20221230
  7. REVLIMID [Suspect]
     Active Substance: LENALIDOMIDE
     Dosage: 1 QD X 21DAYS/28
     Route: 048
     Dates: start: 20221230, end: 20230209
  8. REVLIMID [Suspect]
     Active Substance: LENALIDOMIDE
     Dosage: 1 QD X 21DAYS/28
     Route: 048
     Dates: start: 20230209, end: 20230308
  9. REVLIMID [Suspect]
     Active Substance: LENALIDOMIDE
     Dosage: 1 QD X 21DAYS/28
     Route: 048
     Dates: start: 20230308, end: 20230410
  10. REVLIMID [Suspect]
     Active Substance: LENALIDOMIDE
     Dosage: 1 QD X 21DAYS/28
     Route: 048
     Dates: start: 20230410, end: 20230508
  11. REVLIMID [Suspect]
     Active Substance: LENALIDOMIDE
     Dosage: 1 QD X 21DAYS/28
     Route: 048
     Dates: start: 20230508
  12. ALLOPURINOL [Concomitant]
     Active Substance: ALLOPURINOL
     Indication: Product used for unknown indication
     Route: 048
     Dates: start: 20220816, end: 20230308
  13. DEXAMETHASONE [Concomitant]
     Active Substance: DEXAMETHASONE
     Indication: Product used for unknown indication
     Route: 048
     Dates: start: 20220816
  14. PANTOPRAZOLE SODIUM [Concomitant]
     Active Substance: PANTOPRAZOLE SODIUM
     Indication: Product used for unknown indication
     Route: 048
     Dates: start: 20220816
  15. ATORVASTATIN CALCIUM [Concomitant]
     Active Substance: ATORVASTATIN CALCIUM
     Indication: Product used for unknown indication
     Route: 048
     Dates: start: 20220816
  16. LASIX [Concomitant]
     Active Substance: FUROSEMIDE
     Indication: Product used for unknown indication
     Route: 048
     Dates: start: 20220816
  17. METOPROLOL TARTRATE [Concomitant]
     Active Substance: METOPROLOL TARTRATE
     Indication: Product used for unknown indication
     Route: 048
     Dates: start: 20220816
  18. PRADAXA [Concomitant]
     Active Substance: DABIGATRAN ETEXILATE MESYLATE
     Indication: Product used for unknown indication
     Dosage: BID
     Route: 048
     Dates: start: 20220816
  19. LEVOTHYROXINE SODIUM [Concomitant]
     Active Substance: LEVOTHYROXINE SODIUM
     Indication: Product used for unknown indication
     Route: 048
     Dates: start: 20220816
  20. CYANOCOBALAMIN [Concomitant]
     Active Substance: CYANOCOBALAMIN
     Indication: Product used for unknown indication
     Dosage: INJECTION
     Dates: start: 20220816
  21. VITAMIN D3 [Concomitant]
     Active Substance: CHOLECALCIFEROL
     Indication: Product used for unknown indication
     Dosage: WEEKLY
     Route: 048
     Dates: start: 20220817, end: 20230308
  22. BETAMETHASONE VALERATE [Concomitant]
     Active Substance: BETAMETHASONE VALERATE
     Indication: Product used for unknown indication
     Dosage: EXTERNAL CRE
     Dates: start: 20220817
  23. FERROUS SULFATE [Concomitant]
     Active Substance: FERROUS SULFATE
     Indication: Product used for unknown indication
     Dosage: BID, 325(65
     Route: 048
     Dates: start: 20220817, end: 20221201
  24. MYRBETRIQ [Concomitant]
     Active Substance: MIRABEGRON
     Indication: Product used for unknown indication
     Dosage: TABLET EXTENDED RELE
     Route: 048
     Dates: start: 20220817
  25. SINGULAIR [Concomitant]
     Active Substance: MONTELUKAST SODIUM
     Indication: Product used for unknown indication
     Route: 048
     Dates: start: 20220817
  26. NITROGLYCERIN [Concomitant]
     Active Substance: NITROGLYCERIN
     Indication: Product used for unknown indication
     Route: 060
     Dates: start: 20220817
  27. TAMSULOSIN HYDROCHLORIDE [Concomitant]
     Active Substance: TAMSULOSIN HYDROCHLORIDE
     Route: 048
     Dates: start: 20220817
  28. TYLENOL EXTRA STRENGTH [Concomitant]
     Active Substance: ACETAMINOPHEN
     Indication: Product used for unknown indication
     Dosage: PRN
     Route: 048
     Dates: start: 20220817
  29. COUGH DM [Concomitant]
     Active Substance: DEXTROMETHORPHAN HYDROBROMIDE
     Indication: Product used for unknown indication
     Dosage: 30MG/5ML, EXTENDED R DAILY
     Route: 048
     Dates: start: 20220818
  30. FLUTICASONE PROPIONATE [Concomitant]
     Active Substance: FLUTICASONE PROPIONATE
     Indication: Product used for unknown indication
     Dosage: 50MCG/ , BID
     Route: 045

REACTIONS (2)
  - Anaemia [Unknown]
  - Off label use [Unknown]

NARRATIVE: CASE EVENT DATE: 20230607
